FAERS Safety Report 8004431-2 (Version None)
Quarter: 2011Q4

REPORT INFORMATION
  Report Type: 
  Country: None (occurrence: None)
  Receive Date: 20111221
  Receipt Date: 20111221
  Transmission Date: 20120403
  Serious: Yes (Disabling)
  Sender: FDA-Public Use
  Company Number: None

PATIENT
  Sex: Female
  Weight: 49.8957 kg

DRUGS (1)
  1. ACTONEL [Suspect]
     Indication: OSTEOPOROSIS
     Dosage: 1 TABLET EACH WEEK ORAL
     Route: 048
     Dates: start: 20030601, end: 20110701

REACTIONS (5)
  - WEIGHT DECREASED [None]
  - JOINT DISLOCATION [None]
  - OSTEONECROSIS OF JAW [None]
  - SOCIAL PROBLEM [None]
  - MASTICATION DISORDER [None]
